FAERS Safety Report 12606375 (Version 1)
Quarter: 2016Q3

REPORT INFORMATION
  Report Type: Spontaneous
  Country: FR (occurrence: FR)
  Receive Date: 20160729
  Receipt Date: 20160729
  Transmission Date: 20161109
  Serious: Yes (Other)
  Sender: FDA-Public Use
  Company Number: FR-MYLANLABS-2015M1018265

PATIENT

DRUGS (3)
  1. ALLOPURINOL MYLAN [Suspect]
     Active Substance: ALLOPURINOL
     Indication: BLOOD URIC ACID INCREASED
     Dosage: 200 MG, QD
     Route: 048
     Dates: start: 20150519, end: 20150609
  2. BREXIN                             /00020001/ [Concomitant]
     Indication: GOUT
     Dosage: 20 MG, QD
     Route: 048
  3. COLCHIMAX                          /00728901/ [Concomitant]
     Active Substance: COLCHICINE\DICYCLOMINE HYDROCHLORIDE
     Indication: GOUT
     Route: 048

REACTIONS (2)
  - Urinary retention [Recovered/Resolved]
  - Blister [Recovered/Resolved]

NARRATIVE: CASE EVENT DATE: 20150601
